FAERS Safety Report 21490354 (Version 1)
Quarter: 2022Q4

REPORT INFORMATION
  Report Type: Spontaneous
  Country: TW (occurrence: TW)
  Receive Date: 20221021
  Receipt Date: 20221021
  Transmission Date: 20230112
  Serious: Yes (Other)
  Sender: FDA-Public Use
  Company Number: TW-SUN PHARMACEUTICAL INDUSTRIES LTD-2022RR-360325

PATIENT
  Age: 86 Year
  Sex: Male

DRUGS (7)
  1. AMISULPRIDE [Suspect]
     Active Substance: AMISULPRIDE
     Indication: Sexually inappropriate behaviour
     Dosage: 100 MILLIGRAM, DAILY
     Route: 065
  2. RISPERIDONE [Suspect]
     Active Substance: RISPERIDONE
     Indication: Sexually inappropriate behaviour
     Dosage: UNK
     Route: 065
  3. QUETIAPINE [Suspect]
     Active Substance: QUETIAPINE
     Indication: Sexually inappropriate behaviour
     Dosage: 25 MILLIGRAM, DAILY
     Route: 065
  4. QUETIAPINE [Suspect]
     Active Substance: QUETIAPINE
     Dosage: 100 MILLIGRAM, DAILY
     Route: 065
  5. FINASTERIDE [Suspect]
     Active Substance: FINASTERIDE
     Indication: Sexually inappropriate behaviour
     Dosage: 2.5 MILLIGRAM, DAILY
     Route: 065
  6. CHLORPROMAZINE [Suspect]
     Active Substance: CHLORPROMAZINE
     Indication: Sexually inappropriate behaviour
     Dosage: 50 MILLIGRAM, DAILY
     Route: 065
  7. VALPROIC ACID [Suspect]
     Active Substance: VALPROIC ACID
     Indication: Sexually inappropriate behaviour
     Dosage: 500 MILLIGRAM, DAILY
     Route: 065

REACTIONS (6)
  - Extrapyramidal disorder [Unknown]
  - Drug ineffective [Unknown]
  - Dizziness [Unknown]
  - Choking [Unknown]
  - Therapeutic response unexpected [Unknown]
  - Off label use [Unknown]
